FAERS Safety Report 9666557 (Version 1)
Quarter: 2013Q4

REPORT INFORMATION
  Report Type: Spontaneous
  Country: US (occurrence: None)
  Receive Date: 20131101
  Receipt Date: 20131101
  Transmission Date: 20140711
  Serious: No
  Sender: FDA-Public Use
  Company Number: None

PATIENT
  Sex: Male

DRUGS (11)
  1. ACETAMINOPHEN [Suspect]
  2. LISINOPRIL [Suspect]
  3. METFORMIN [Suspect]
  4. ASPIRIN [Suspect]
  5. TERAZOSIN [Suspect]
  6. TERAZOSIN [Suspect]
  7. DOCUSATE SODIUM [Suspect]
  8. RANITIDINE [Suspect]
  9. LOSARTAN [Suspect]
  10. B-COMPLEX [Suspect]
  11. HCTZ [Suspect]

REACTIONS (1)
  - Organ failure [None]
